FAERS Safety Report 17551435 (Version 3)
Quarter: 2020Q2

REPORT INFORMATION
  Report Type: Report from Study
  Country: US (occurrence: US)
  Receive Date: 20200317
  Receipt Date: 20200521
  Transmission Date: 20200713
  Serious: Yes (Hospitalization)
  Sender: FDA-Public Use
  Company Number: NVSC2020US072915

PATIENT
  Sex: Male

DRUGS (2)
  1. COSENTYX [Suspect]
     Active Substance: SECUKINUMAB
     Indication: PSORIATIC ARTHROPATHY
  2. COSENTYX [Suspect]
     Active Substance: SECUKINUMAB
     Indication: PSORIASIS
     Dosage: UNK
     Route: 065

REACTIONS (6)
  - Chondrocalcinosis pyrophosphate [Recovered/Resolved]
  - Pain in extremity [Unknown]
  - Tooth abscess [Recovered/Resolved]
  - Arthralgia [Unknown]
  - Joint swelling [Recovered/Resolved]
  - Swelling [Unknown]
